FAERS Safety Report 8758138 (Version 2)
Quarter: 2013Q4

REPORT INFORMATION
  Report Type: Spontaneous
  Country: US (occurrence: US)
  Receive Date: 20120828
  Receipt Date: 20131101
  Transmission Date: 20140711
  Serious: No
  Sender: FDA-Public Use
  Company Number: US-009507513-1208USA009128

PATIENT
  Age: 69 Year
  Sex: Female
  Weight: 96.15 kg

DRUGS (7)
  1. JANUVIA [Suspect]
     Indication: DIABETES MELLITUS
     Dosage: 1 DF, QD
     Route: 048
     Dates: start: 20120705, end: 20120813
  2. GABAPIN [Concomitant]
  3. CYMBALTA [Concomitant]
  4. NEOFORM [Concomitant]
  5. OXYBUTYNIN [Concomitant]
  6. OMEPRAZOLE [Concomitant]
  7. LIZIPAINA [Concomitant]

REACTIONS (3)
  - Dry mouth [Unknown]
  - Blood glucose increased [Unknown]
  - Constipation [Unknown]
